FAERS Safety Report 13929339 (Version 3)
Quarter: 2018Q2

REPORT INFORMATION
  Report Type: Report from Study
  Country: US (occurrence: US)
  Receive Date: 20170901
  Receipt Date: 20180619
  Transmission Date: 20180711
  Serious: Yes (Hospitalization, Other)
  Sender: FDA-Public Use
  Company Number: US-AMGEN-USASL2017131157

PATIENT
  Age: 62 Year
  Sex: Female

DRUGS (2)
  1. ENBREL [Suspect]
     Active Substance: ETANERCEPT
     Dosage: 50 MG, QWK
     Route: 065
  2. ENBREL [Suspect]
     Active Substance: ETANERCEPT
     Indication: RHEUMATOID ARTHRITIS
     Dosage: 50 MG, QWK
     Route: 065
     Dates: start: 2016

REACTIONS (14)
  - Disability [Unknown]
  - Postoperative wound infection [Not Recovered/Not Resolved]
  - Dermatitis [Unknown]
  - Intentional product misuse [Unknown]
  - Pain [Unknown]
  - Delirium [Unknown]
  - Device related infection [Unknown]
  - Injection site pain [Unknown]
  - Peripheral swelling [Unknown]
  - Drug ineffective [Unknown]
  - Blood potassium decreased [Unknown]
  - Knee arthroplasty [Unknown]
  - Tooth disorder [Unknown]
  - Wound infection staphylococcal [Not Recovered/Not Resolved]

NARRATIVE: CASE EVENT DATE: 201708
